FAERS Safety Report 4620671-4 (Version None)
Quarter: 2005Q1

REPORT INFORMATION
  Report Type: 
  Country: None (occurrence: None)
  Receive Date: 20050328
  Receipt Date: 20050210
  Transmission Date: 20050727
  Serious: Yes (Other)
  Sender: FDA-Public Use
  Company Number: US-BRISTOL-MYERS SQUIBB COMPANY-12857819

PATIENT
  Age: 78 Year
  Sex: Female

DRUGS (16)
  1. COUMADIN [Suspect]
     Indication: CEREBROVASCULAR ACCIDENT
     Dosage: DOSAGE = 3 MG 1/2 TABLET
     Dates: end: 20050117
  2. PLAVIX [Suspect]
     Indication: CEREBROVASCULAR ACCIDENT
     Dosage: TEMP INTERRUPTED 24-JAN-2005 AND RESTARTED 29-JAN-2005
     Route: 048
     Dates: start: 20050117
  3. AMBIEN [Concomitant]
     Dosage: AT BEDTIME
     Dates: start: 20040701
  4. ATENOLOL [Concomitant]
     Dates: start: 20040701
  5. ATIVAN [Concomitant]
     Dosage: 0.5 EVERY 8 HOURS AS NEEDED
     Dates: start: 20040701
  6. CALTRATE VITAMINE D3 [Concomitant]
     Dates: start: 20040701
  7. DOXYCYCLINE [Concomitant]
     Dates: start: 20040701
  8. EXELON [Concomitant]
     Dates: start: 20040701
  9. IMODIUM [Concomitant]
     Dosage: 2 MG EVERY 4 HOURS AS NEEDED
     Dates: start: 20040701
  10. INDAPAMIDE [Concomitant]
     Dates: start: 20040701
  11. K-LYTE [Concomitant]
     Dates: start: 20040701
  12. PHENERGAN [Concomitant]
     Dosage: 12.5 MG EVERY 6 HOURS AS NEEDED
     Dates: start: 20040701
  13. ROBITUSSIN DM [Concomitant]
     Dosage: 10 CC EVERY 4 HOURS AS NEEDED
     Dates: start: 20040701
  14. TYLENOL (CAPLET) [Concomitant]
     Dosage: 650 MG 1-2 TABS 3 X DAILY AS NEEDED
     Dates: start: 20040701
  15. ZYPREXA [Concomitant]
     Dates: start: 20040701
  16. ZOLOFT [Concomitant]
     Dates: start: 20040701

REACTIONS (3)
  - CONTUSION [None]
  - FALL [None]
  - INTERNATIONAL NORMALISED RATIO INCREASED [None]
